FAERS Safety Report 5620115-X (Version None)
Quarter: 2008Q1

REPORT INFORMATION
  Report Type: 
  Country: None (occurrence: None)
  Receive Date: 20080208
  Receipt Date: 20080204
  Transmission Date: 20080703
  Serious: No
  Sender: FDA-Public Use
  Company Number: DE-AVENTIS-200810203DE

PATIENT
  Age: 30 Year
  Sex: Female

DRUGS (3)
  1. ARAVA [Suspect]
     Route: 048
     Dates: end: 20071101
  2. PREDNISOLONE [Concomitant]
     Route: 048
     Dates: end: 20071101
  3. IBUPROFEN [Concomitant]
     Route: 048
     Dates: end: 20071101

REACTIONS (1)
  - DRUG EXPOSURE DURING PREGNANCY [None]
